FAERS Safety Report 24544063 (Version 3)
Quarter: 2025Q3

REPORT INFORMATION
  Report Type: Report from Study
  Country: ZA (occurrence: ZA)
  Receive Date: 20241024
  Receipt Date: 20250827
  Transmission Date: 20251021
  Serious: Yes (Death, Other)
  Sender: ALEXION PHARMACEUTICALS
  Company Number: ZA-AstraZeneca-CH-00726587A

PATIENT
  Age: 86 Year
  Sex: Female

DRUGS (6)
  1. BUDESONIDE\FORMOTEROL [Suspect]
     Active Substance: BUDESONIDE\FORMOTEROL
     Indication: Asthma
  2. BUDESONIDE\FORMOTEROL [Suspect]
     Active Substance: BUDESONIDE\FORMOTEROL
     Indication: Chronic obstructive pulmonary disease
  3. BUDESONIDE\FORMOTEROL [Suspect]
     Active Substance: BUDESONIDE\FORMOTEROL
     Indication: Emphysema
  4. Stilpane [Concomitant]
  5. AZITHROMYCIN [Concomitant]
     Active Substance: AZITHROMYCIN
  6. Lipogen [Concomitant]
     Indication: Blood cholesterol

REACTIONS (1)
  - Death [Fatal]
